FAERS Safety Report 6237298-3 (Version None)
Quarter: 2009Q2

REPORT INFORMATION
  Report Type: 
  Country: None (occurrence: None)
  Receive Date: 20090619
  Receipt Date: 20090609
  Transmission Date: 20091009
  Serious: Yes (Hospitalization, Other)
  Sender: FDA-Public Use
  Company Number: US-MYLANLABS-2009S1008122

PATIENT
  Age: 26 Year
  Sex: Male
  Weight: 75.75 kg

DRUGS (10)
  1. KEPPRA [Suspect]
     Indication: SIMPLE PARTIAL SEIZURES
     Route: 048
  2. KEPPRA [Suspect]
     Indication: EPILEPSY
     Route: 048
  3. LEVETIRACETAM [Suspect]
     Indication: SIMPLE PARTIAL SEIZURES
     Route: 048
  4. LEVETIRACETAM [Suspect]
     Indication: EPILEPSY
     Route: 048
  5. LEVETIRACETAM [Suspect]
     Route: 048
  6. LEVETIRACETAM [Suspect]
     Route: 048
  7. DIASTAT [Concomitant]
  8. DILANTIN [Concomitant]
  9. GABITRIL [Concomitant]
  10. ATIVAN [Concomitant]

REACTIONS (3)
  - DRUG INEFFECTIVE [None]
  - SIMPLE PARTIAL SEIZURES [None]
  - STATUS EPILEPTICUS [None]
